FAERS Safety Report 20767934 (Version 1)
Quarter: 2022Q2

REPORT INFORMATION
  Report Type: Spontaneous
  Country: US (occurrence: US)
  Receive Date: 20220429
  Receipt Date: 20220429
  Transmission Date: 20220721
  Serious: Yes (Death, Life-Threatening, Hospitalization, Other)
  Sender: FDA-Public Use
  Company Number: US-AMGEN-USASP2022069720

PATIENT

DRUGS (2)
  1. BEVACIZUMAB [Suspect]
     Active Substance: BEVACIZUMAB
     Indication: Hepatocellular carcinoma
     Dosage: UNK
     Route: 065
  2. ATEZOLIZUMAB [Suspect]
     Active Substance: ATEZOLIZUMAB
     Indication: Hepatocellular carcinoma
     Dosage: UNK
     Route: 065

REACTIONS (29)
  - Toxicity to various agents [Fatal]
  - Death [Fatal]
  - Hepatic failure [Fatal]
  - Duodenal ulcer haemorrhage [Unknown]
  - Duodenal ulcer [Unknown]
  - Intra-abdominal haematoma [Unknown]
  - Abdominal compartment syndrome [Fatal]
  - Acute kidney injury [Fatal]
  - Multiple organ dysfunction syndrome [Fatal]
  - Hepatic encephalopathy [Unknown]
  - Varices oesophageal [Unknown]
  - Gastric varices haemorrhage [Unknown]
  - Hepatocellular carcinoma [Fatal]
  - Ill-defined disorder [Fatal]
  - Hepatic cirrhosis [Unknown]
  - Sepsis [Fatal]
  - Gastrointestinal haemorrhage [Unknown]
  - Melaena [Unknown]
  - Dermatitis [Unknown]
  - Off label use [Unknown]
  - Gastroenteritis [Unknown]
  - Weight decreased [Unknown]
  - Abdominal pain [Unknown]
  - Diarrhoea [Unknown]
  - Constipation [Unknown]
  - Vomiting [Unknown]
  - Pain [Unknown]
  - Fatigue [Unknown]
  - Nausea [Unknown]
